FAERS Safety Report 7080898-1 (Version None)
Quarter: 2010Q4

REPORT INFORMATION
  Report Type: 
  Country: None (occurrence: None)
  Receive Date: 20101103
  Receipt Date: 20101025
  Transmission Date: 20110411
  Serious: Yes (Hospitalization)
  Sender: FDA-Public Use
  Company Number: KP-ASTRAZENECA-2010SE50369

PATIENT
  Age: 24499 Day
  Sex: Female

DRUGS (7)
  1. CRESTOR [Suspect]
     Indication: HYPERLIPIDAEMIA
     Route: 048
     Dates: start: 20050628
  2. ASPIRIN [Concomitant]
     Dates: start: 20050603
  3. PLAVIX [Concomitant]
     Dates: start: 20050603
  4. SELVEX [Concomitant]
     Dates: start: 20050605
  5. ULCERMIN [Concomitant]
     Dates: start: 20050604
  6. MICARDIS [Concomitant]
     Dates: start: 20040802
  7. ISOSORBIDE DINITRATE [Concomitant]
     Dates: start: 20050609

REACTIONS (1)
  - CHEST PAIN [None]
